FAERS Safety Report 5924702-0 (Version None)
Quarter: 2008Q4

REPORT INFORMATION
  Report Type: 
  Country: None (occurrence: None)
  Receive Date: 20081016
  Receipt Date: 20081002
  Transmission Date: 20090506
  Serious: Yes (Hospitalization)
  Sender: FDA-Public Use
  Company Number: 02100-JPN-06-0460

PATIENT
  Age: 70 Year
  Sex: Male
  Weight: 55 kg

DRUGS (26)
  1. PLETAL [Suspect]
     Indication: CEREBRAL INFARCTION
     Dosage: SEE IMAGE
     Route: 048
     Dates: start: 20040702, end: 20040702
  2. PLETAL [Suspect]
     Indication: CEREBRAL INFARCTION
     Dosage: SEE IMAGE
     Route: 048
     Dates: start: 20040707, end: 20060911
  3. PLETAL [Suspect]
     Indication: CEREBRAL INFARCTION
     Dosage: SEE IMAGE
     Route: 048
     Dates: start: 20061004
  4. PLETAL [Suspect]
     Indication: CEREBRAL INFARCTION
     Dosage: SEE IMAGE
     Route: 048
     Dates: start: 20040702, end: 20040702
  5. PLETAL [Suspect]
     Indication: CEREBRAL INFARCTION
     Dosage: SEE IMAGE
     Route: 048
     Dates: start: 20040707, end: 20060911
  6. PLETAL [Suspect]
     Indication: CEREBRAL INFARCTION
     Dosage: SEE IMAGE
     Route: 048
     Dates: start: 20061004
  7. BLOPRESS (CANDESARTAN CILEXATIL) TABLET [Concomitant]
  8. INDIGOCARMINE (INDIGOCARMINE) INJECTION [Concomitant]
  9. JUSO-JO (SODIUM BICARBONATE) [Concomitant]
  10. PRONASE (PRONASE) CAPSULE [Concomitant]
  11. BUSCOPAN (BUTYLSCOPOLANINE BROMIDE) INJECTION [Concomitant]
  12. XYLOCAINE (LIDOCAINE HYDROCHLORIDE) GEL [Concomitant]
  13. XYLOCAINE [Concomitant]
  14. DASEN (SERRAPEPTASE) [Concomitant]
  15. PL (NON-PYRINE PREPARATION FOR COLD SYMPTOM 4) GRANULE [Concomitant]
  16. SEKIDONE (DIHYDROCODEINE-EPHEDRIN COMBINED DRUG) SYRUP [Concomitant]
  17. INTAL (CROMOGLICATE SODIUM) EYE DROPS [Concomitant]
  18. DIOVAN [Concomitant]
  19. LIPOVAS (SIMVASTATIN) TABLET [Concomitant]
  20. TARIVID (OGLOXACIN) EYE DROPS [Concomitant]
  21. GASTER D (FAMOTIDINE) TABLET [Concomitant]
  22. ULCERMIN (SUCRALFATE) UNKNOWN [Concomitant]
  23. PARIET (SODIUM RABEPRAZOLE) TABLET [Concomitant]
  24. RIZABEN (TRANILAST) EYE DROPS [Concomitant]
  25. MOHRUS TAPE (KETOPROFEN) TAPE (INCLUDING POULTICE) [Concomitant]
  26. URIEF (DILODOSIN) CAPSULE [Concomitant]

REACTIONS (3)
  - CEREBRAL INFARCTION [None]
  - MASS [None]
  - NEOPLASM SKIN [None]
